FAERS Safety Report 20636612 (Version 1)
Quarter: 2022Q1

REPORT INFORMATION
  Report Type: Spontaneous
  Country: CN (occurrence: None)
  Receive Date: 20220325
  Receipt Date: 20220325
  Transmission Date: 20220423
  Serious: Yes (Other)
  Sender: FDA-Public Use
  Company Number: CN-ROCHE-3051717

PATIENT
  Age: 59 Year
  Sex: Female

DRUGS (34)
  1. BEVACIZUMAB [Suspect]
     Active Substance: BEVACIZUMAB
     Indication: Rectal cancer
     Route: 065
     Dates: start: 201912, end: 202004
  2. BEVACIZUMAB [Suspect]
     Active Substance: BEVACIZUMAB
     Route: 065
     Dates: start: 202011, end: 202101
  3. BEVACIZUMAB [Suspect]
     Active Substance: BEVACIZUMAB
     Route: 065
     Dates: start: 20210108
  4. BEVACIZUMAB [Suspect]
     Active Substance: BEVACIZUMAB
     Route: 065
     Dates: start: 20210223
  5. BEVACIZUMAB [Suspect]
     Active Substance: BEVACIZUMAB
     Route: 065
     Dates: start: 20210319
  6. BEVACIZUMAB [Suspect]
     Active Substance: BEVACIZUMAB
     Route: 065
     Dates: start: 20210714
  7. BEVACIZUMAB [Suspect]
     Active Substance: BEVACIZUMAB
     Route: 065
     Dates: start: 20210802
  8. BEVACIZUMAB [Suspect]
     Active Substance: BEVACIZUMAB
     Route: 065
     Dates: start: 20210825
  9. BEVACIZUMAB [Suspect]
     Active Substance: BEVACIZUMAB
     Route: 065
     Dates: start: 20210918
  10. CAPECITABINE [Suspect]
     Active Substance: CAPECITABINE
     Indication: Rectal cancer
     Route: 048
     Dates: start: 20191021
  11. CAPECITABINE [Suspect]
     Active Substance: CAPECITABINE
     Route: 065
     Dates: start: 20210108
  12. CAPECITABINE [Suspect]
     Active Substance: CAPECITABINE
     Route: 065
     Dates: start: 20210223
  13. CAPECITABINE [Suspect]
     Active Substance: CAPECITABINE
     Route: 065
     Dates: start: 20210319
  14. CAPECITABINE [Suspect]
     Active Substance: CAPECITABINE
     Route: 065
     Dates: start: 20210514
  15. CAPECITABINE [Suspect]
     Active Substance: CAPECITABINE
     Route: 065
     Dates: start: 20210618
  16. CAPECITABINE [Suspect]
     Active Substance: CAPECITABINE
     Route: 065
     Dates: start: 20210714
  17. CAPECITABINE [Suspect]
     Active Substance: CAPECITABINE
     Route: 065
     Dates: start: 20210802
  18. CAPECITABINE [Suspect]
     Active Substance: CAPECITABINE
     Route: 065
     Dates: start: 20210825
  19. CAPECITABINE [Suspect]
     Active Substance: CAPECITABINE
     Route: 065
     Dates: start: 20210918
  20. CAPECITABINE [Suspect]
     Active Substance: CAPECITABINE
     Route: 048
  21. IRINOTECAN [Concomitant]
     Active Substance: IRINOTECAN
     Indication: Rectal cancer
     Route: 065
     Dates: start: 20210108
  22. IRINOTECAN [Concomitant]
     Active Substance: IRINOTECAN
     Route: 065
     Dates: start: 20210223
  23. IRINOTECAN [Concomitant]
     Active Substance: IRINOTECAN
     Route: 065
     Dates: start: 20210319
  24. IRINOTECAN [Concomitant]
     Active Substance: IRINOTECAN
     Route: 065
     Dates: start: 20210514
  25. IRINOTECAN [Concomitant]
     Active Substance: IRINOTECAN
     Route: 065
     Dates: start: 20210618
  26. FRUQUINTINIB [Concomitant]
     Active Substance: FRUQUINTINIB
     Indication: Rectal cancer
     Route: 065
     Dates: start: 20211220
  27. TIPIRACIL HYDROCHLORIDE [Concomitant]
     Active Substance: TIPIRACIL HYDROCHLORIDE
     Indication: Rectal cancer
     Route: 065
     Dates: start: 20211220
  28. OXALIPLATIN [Concomitant]
     Active Substance: OXALIPLATIN
     Indication: Rectal cancer
     Route: 065
     Dates: start: 20191021
  29. OXALIPLATIN [Concomitant]
     Active Substance: OXALIPLATIN
     Route: 065
     Dates: start: 201911
  30. OXALIPLATIN [Concomitant]
     Active Substance: OXALIPLATIN
     Route: 065
     Dates: start: 201912, end: 202004
  31. FLUOROURACIL [Concomitant]
     Active Substance: FLUOROURACIL
     Indication: Rectal cancer
     Route: 065
     Dates: start: 201911
  32. FLUOROURACIL [Concomitant]
     Active Substance: FLUOROURACIL
     Route: 065
     Dates: start: 201912, end: 202004
  33. LEUCOVORIN CALCIUM [Concomitant]
     Active Substance: LEUCOVORIN CALCIUM
     Indication: Rectal cancer
     Route: 065
     Dates: start: 201911
  34. LEUCOVORIN CALCIUM [Concomitant]
     Active Substance: LEUCOVORIN CALCIUM
     Route: 065
     Dates: start: 201912, end: 202004

REACTIONS (1)
  - Gastrointestinal disorder [Unknown]
